FAERS Safety Report 5769070-2 (Version None)
Quarter: 2008Q2

REPORT INFORMATION
  Report Type: 
  Country: None (occurrence: None)
  Receive Date: 20080610
  Receipt Date: 20080529
  Transmission Date: 20081010
  Serious: Yes (Other)
  Sender: FDA-Public Use
  Company Number: GXKR2008JP04896

PATIENT
  Age: 47 Year
  Sex: Female

DRUGS (2)
  1. IRINOTECAN HCL [Suspect]
     Indication: CERVIX CARCINOMA
     Dosage: 4 DOSES, TOTAL DOSE 430 MG, INJECTION NOS
  2. NEDAPLATIN (NEDAPLATIN) [Concomitant]

REACTIONS (7)
  - BLOOD FOLLICLE STIMULATING HORMONE INCREASED [None]
  - BLOOD LUTEINISING HORMONE INCREASED [None]
  - DIARRHOEA [None]
  - HOT FLUSH [None]
  - MALAISE [None]
  - MENOPAUSAL DISORDER [None]
  - OVARIAN DISORDER [None]
